FAERS Safety Report 5028658-7 (Version None)
Quarter: 2006Q2

REPORT INFORMATION
  Report Type: 
  Country: None (occurrence: None)
  Receive Date: 20060619
  Receipt Date: 20060612
  Transmission Date: 20061013
  Serious: Yes (Death, Other)
  Sender: FDA-Public Use
  Company Number: PHBS2006JP08880

PATIENT
  Age: 86 Year
  Sex: Female

DRUGS (14)
  1. ADALAT [Concomitant]
     Indication: HYPERTENSION
     Dosage: 20 MG/D
     Route: 048
  2. ADALAT [Concomitant]
     Dosage: 40 MG/D
     Route: 048
  3. SEPAZON [Concomitant]
     Dosage: 2 MG/D
     Route: 048
  4. ALLOPURINOL [Concomitant]
     Dosage: 100 MG/D
     Route: 048
  5. LASIX [Concomitant]
     Indication: RENAL FAILURE CHRONIC
     Dosage: 20 MG/D
     Route: 048
  6. LASIX [Concomitant]
     Dosage: 20 MG/D
     Route: 042
  7. DESFERAL [Concomitant]
     Dosage: 500 MG/D
     Route: 042
     Dates: start: 20030101
  8. PURSENNID [Concomitant]
     Dosage: 24 MG/D
     Route: 048
  9. CALCIUM POLYSTYRENE SULFONATE [Concomitant]
     Dosage: 75 G/D
     Route: 048
  10. IMURAN [Concomitant]
     Dosage: 25 MG/D
     Route: 048
  11. NEORAL [Suspect]
     Indication: APLASIA PURE RED CELL
     Dosage: 200 MG/D
     Route: 048
  12. NEORAL [Suspect]
     Dosage: 100 MG/D
     Route: 048
     Dates: start: 20020901, end: 20030901
  13. NEORAL [Suspect]
     Dosage: 200 MG/D
     Route: 048
     Dates: start: 20031001, end: 20040801
  14. NEORAL [Suspect]
     Dosage: 250 MG/D
     Route: 048
     Dates: start: 20040901

REACTIONS (5)
  - ASTHMA [None]
  - BRONCHITIS [None]
  - CARDIAC FAILURE CONGESTIVE [None]
  - PNEUMONIA [None]
  - RENAL FAILURE ACUTE [None]
